FAERS Safety Report 4889264-8 (Version None)
Quarter: 2006Q1

REPORT INFORMATION
  Report Type: 
  Country: None (occurrence: None)
  Receive Date: 20060124
  Receipt Date: 20060104
  Transmission Date: 20060701
  Serious: Yes (Life-Threatening)
  Sender: FDA-Public Use
  Company Number: 2006SE00092

PATIENT
  Age: 9589 Day
  Sex: Male

DRUGS (6)
  1. SEROQUEL [Suspect]
     Indication: PSYCHOTIC DISORDER
     Route: 048
     Dates: start: 20051125
  2. SEROQUEL [Suspect]
     Route: 048
     Dates: start: 20051129, end: 20051130
  3. SEROQUEL [Suspect]
     Dosage: 100 MG IN THE MORNIG AND 300 MG IN THE EVENING
     Route: 048
     Dates: start: 20051201, end: 20051207
  4. OLANZAPINE [Concomitant]
     Dates: start: 20051207
  5. DIAZEPAM [Concomitant]
     Dosage: THERAPEUTIC DOSE
  6. TEMAZEPAM [Concomitant]
     Dosage: THERAPEUTIC DOSE

REACTIONS (5)
  - BLOOD CREATINE PHOSPHOKINASE INCREASED [None]
  - DELUSION [None]
  - DIZZINESS [None]
  - HALLUCINATION [None]
  - NAUSEA [None]
